FAERS Safety Report 17697711 (Version 1)
Quarter: 2020Q2

REPORT INFORMATION
  Report Type: Report from Study
  Country: JP (occurrence: JP)
  Receive Date: 20200423
  Receipt Date: 20200423
  Transmission Date: 20200714
  Serious: Yes (Other)
  Sender: FDA-Public Use
  Company Number: JP-CELLTRION INC.-2017JP014292

PATIENT

DRUGS (15)
  1. INFLIXIMAB BS FOR I.V. INFUSION100 MG [NK] [Suspect]
     Active Substance: INFLIXIMAB
     Dosage: 240 MG/BODY/DAY
     Route: 041
     Dates: start: 20160907, end: 20160907
  2. RESTAMIN [DIPHENHYDRAMINE HYDROCHLORIDE] [Concomitant]
     Indication: PROPHYLAXIS
     Dosage: 50 MG/DAY
     Dates: start: 201105
  3. INFLIXIMAB BS FOR I.V. INFUSION100 MG [NK] [Suspect]
     Active Substance: INFLIXIMAB
     Dosage: 240 MG/BODY/DAY
     Route: 041
     Dates: start: 20160713, end: 20160713
  4. INFLIXIMAB BS FOR I.V. INFUSION100 MG [NK] [Suspect]
     Active Substance: INFLIXIMAB
     Dosage: 240 MG/BODY/DAY
     Route: 041
     Dates: start: 20160323, end: 20160323
  5. INFLIXIMAB BS FOR I.V. INFUSION100 MG [NK] [Suspect]
     Active Substance: INFLIXIMAB
     Dosage: 240 MG/BODY/DAY
     Route: 041
     Dates: start: 20161228, end: 20161228
  6. SOLU-CORTEF [Concomitant]
     Active Substance: HYDROCORTISONE SODIUM SUCCINATE
     Indication: PROPHYLAXIS
     Dosage: 200 MG/DAY
     Dates: start: 201105
  7. GASTER [Concomitant]
     Active Substance: FAMOTIDINE
     Indication: PROPHYLAXIS
     Dosage: 20 MG/DAY
     Dates: start: 201105
  8. INFLIXIMAB BS FOR I.V. INFUSION100 MG [NK] [Suspect]
     Active Substance: INFLIXIMAB
     Dosage: 240 MG/BODY/DAY
     Route: 041
     Dates: start: 20160518, end: 20160518
  9. CALONAL [Concomitant]
     Active Substance: ACETAMINOPHEN
     Indication: PROPHYLAXIS
     Dosage: 400 MG/DAY
     Dates: start: 201105
  10. INFLIXIMAB BS FOR I.V. INFUSION100 MG [NK] [Suspect]
     Active Substance: INFLIXIMAB
     Indication: CROHN^S DISEASE
     Dosage: 240 MG/BODY/DAY
     Route: 041
     Dates: start: 20160127, end: 20160127
  11. INFLIXIMAB BS FOR I.V. INFUSION100 MG [NK] [Suspect]
     Active Substance: INFLIXIMAB
     Dosage: 240 MG/BODY/DAY
     Route: 041
     Dates: start: 20171213, end: 20171213
  12. PENTASA [Concomitant]
     Active Substance: MESALAMINE
     Indication: CROHN^S DISEASE
     Dosage: 2000 MG/DAY
     Dates: start: 201003
  13. INFLIXIMAB BS FOR I.V. INFUSION100 MG [NK] [Suspect]
     Active Substance: INFLIXIMAB
     Dosage: 240 MG/BODY/DAY
     Route: 041
     Dates: start: 20161102, end: 20161102
  14. INFLIXIMAB BS FOR I.V. INFUSION100 MG [NK] [Suspect]
     Active Substance: INFLIXIMAB
     Dosage: 240 MG/BODY/DAY
     Route: 041
     Dates: start: 20170222, end: 20170222
  15. IMURAN [Concomitant]
     Active Substance: AZATHIOPRINE
     Indication: CROHN^S DISEASE
     Dosage: 25 MG/DAY
     Dates: start: 20160127

REACTIONS (8)
  - Condition aggravated [Unknown]
  - Ileal ulcer [Unknown]
  - Infusion related reaction [Recovering/Resolving]
  - Underdose [Unknown]
  - Influenza [Recovered/Resolved]
  - Contraindicated product administered [Unknown]
  - Upper respiratory tract inflammation [Recovered/Resolved]
  - Dyspnoea [Recovering/Resolving]

NARRATIVE: CASE EVENT DATE: 20160127
